FAERS Safety Report 4380921-9 (Version None)
Quarter: 2004Q2

REPORT INFORMATION
  Report Type: 
  Country: None (occurrence: None)
  Receive Date: 20040616
  Receipt Date: 20040608
  Transmission Date: 20050107
  Serious: Yes (Other)
  Sender: FDA-Public Use
  Company Number: 2004-02-1448

PATIENT
  Age: 42 Year
  Sex: Female
  Weight: 68 kg

DRUGS (3)
  1. TEMODAL [Suspect]
     Indication: GLIOBLASTOMA
     Dosage: 50-350MG X5D* ORAL  SEE IMAGE
     Route: 048
     Dates: start: 20031101
  2. OFLOXACIN [Suspect]
     Indication: INFECTION
     Dosage: ORAL
     Route: 048
  3. IRON TABLETS [Suspect]
     Indication: IRON DEFICIENCY
     Dosage: ORAL
     Route: 048

REACTIONS (2)
  - GAMMA-GLUTAMYLTRANSFERASE INCREASED [None]
  - HEPATIC ENZYME INCREASED [None]
